FAERS Safety Report 11729207 (Version 2)
Quarter: 2015Q4

REPORT INFORMATION
  Report Type: Spontaneous
  Country: US (occurrence: US)
  Receive Date: 20151112
  Receipt Date: 20151222
  Transmission Date: 20160304
  Serious: Yes (Other)
  Sender: FDA-Public Use
  Company Number: US-PFIZER INC-2015369485

PATIENT
  Age: 35 Year
  Sex: Female

DRUGS (6)
  1. OXYCONTIN [Concomitant]
     Active Substance: OXYCODONE HYDROCHLORIDE
     Dosage: UNK
  2. PROTONIX [Concomitant]
     Active Substance: PANTOPRAZOLE SODIUM
     Dosage: UNK
  3. SUTENT [Suspect]
     Active Substance: SUNITINIB MALATE
     Dosage: 12.5 MG DAILY (ONE CAPSULE OF 12.5 MG DAILY)
     Route: 048
     Dates: end: 201510
  4. DIOCTYN [Concomitant]
     Dosage: UNK
  5. ZOFRAN [Concomitant]
     Active Substance: ONDANSETRON HYDROCHLORIDE
  6. SUTENT [Suspect]
     Active Substance: SUNITINIB MALATE
     Indication: NEUROENDOCRINE CARCINOMA
     Dosage: 50 MG, DAILY (4 CAPSULES OF 12.5 MG DAILY)
     Route: 048

REACTIONS (11)
  - Pruritus [Unknown]
  - Urticaria [Unknown]
  - Fatigue [Unknown]
  - White blood cell count decreased [Unknown]
  - Neutrophil count decreased [Unknown]
  - Vomiting [Unknown]
  - Neuroendocrine carcinoma [Unknown]
  - Muscle spasms [Unknown]
  - Neutropenia [Unknown]
  - Dysgeusia [Unknown]
  - Disease progression [Unknown]
